FAERS Safety Report 5266216-X (Version None)
Quarter: 2007Q1

REPORT INFORMATION
  Report Type: 
  Country: None (occurrence: None)
  Receive Date: 20070315
  Receipt Date: 20070314
  Transmission Date: 20070707
  Serious: Yes (Other)
  Sender: FDA-Public Use
  Company Number: US-GLAXOSMITHKLINE-A0643110A

PATIENT
  Age: 58 Year
  Sex: Female
  Weight: 75.7 kg

DRUGS (11)
  1. FLOLAN [Suspect]
     Dosage: 18NGKM UNKNOWN
     Route: 042
     Dates: start: 20060301
  2. OXYCODONE HCL [Concomitant]
     Dosage: 5MG AS REQUIRED
     Route: 048
  3. HYDREA [Concomitant]
     Dosage: 500MG PER DAY
     Route: 048
  4. K-DUR 10 [Concomitant]
     Dosage: 20MEQ PER DAY
     Route: 048
  5. NEXIUM [Concomitant]
     Dosage: 20MG PER DAY
     Route: 048
  6. MECLIZINE [Concomitant]
     Dosage: 25MG AS REQUIRED
     Route: 048
  7. ARANESP [Concomitant]
     Dosage: 300Z EVERY TWO WEEKS
     Route: 058
  8. MAGNESIUM OXIDE [Concomitant]
     Dosage: 400MG TWICE PER DAY
     Route: 048
  9. CARDIZEM [Concomitant]
     Dosage: 15MG TWICE PER DAY
     Route: 048
  10. OXYGEN [Concomitant]
     Route: 045
  11. TRACLEER [Concomitant]
     Dosage: 125MG TWICE PER DAY
     Route: 048

REACTIONS (2)
  - CATHETER RELATED COMPLICATION [None]
  - PHARMACEUTICAL PRODUCT COMPLAINT [None]
